FAERS Safety Report 7437153-7 (Version None)
Quarter: 2011Q2

REPORT INFORMATION
  Report Type: 
  Country: None (occurrence: None)
  Receive Date: 20110426
  Receipt Date: 20110328
  Transmission Date: 20111010
  Serious: Yes (Hospitalization, Other)
  Sender: FDA-Public Use
  Company Number: US-BAYER-2010-003130

PATIENT
  Sex: Female
  Weight: 102.95 kg

DRUGS (9)
  1. LORTAB [Concomitant]
     Indication: PAIN
     Dosage: 30 MG, QD
     Route: 048
  2. PROPOXYPHENE NAPSYLATE W/PARACETAMOL [Concomitant]
     Dosage: UNK
     Dates: start: 20040129
  3. AMOXICILLIN AND CLAVULANATE POTASSIUM [Concomitant]
     Dosage: 500 UNK, UNK
     Route: 048
  4. PHENERGAN HCL [Concomitant]
     Indication: NAUSEA
     Dosage: 25 MG, PRN
     Route: 048
  5. PREVACID [Concomitant]
     Indication: HYPERCHLORHYDRIA
     Dosage: 30 MG, QD
     Route: 048
  6. YAZ [Suspect]
     Indication: PRODUCT USED FOR UNKNOWN INDICATION
     Dosage: UNK
     Dates: start: 20020201
  7. RANITIDINE [Concomitant]
  8. YASMIN [Suspect]
     Indication: MENSTRUATION IRREGULAR
     Dosage: UNK
     Dates: start: 20020201, end: 20060101
  9. GUAIFENESIN AND PSEUDOEPHEDRINE HYDROCHLORIDE [Concomitant]
     Dosage: UNK
     Dates: start: 20040311

REACTIONS (5)
  - CHOLECYSTITIS CHRONIC [None]
  - PAIN [None]
  - ABDOMINAL PAIN [None]
  - CHOLELITHIASIS [None]
  - INJURY [None]
